FAERS Safety Report 7221717-X (Version None)
Quarter: 2011Q1

REPORT INFORMATION
  Report Type: 
  Country: None (occurrence: None)
  Receive Date: 20110112
  Receipt Date: 20110110
  Transmission Date: 20110831
  Serious: Yes (Other)
  Sender: FDA-Public Use
  Company Number: TW-ROCHE-752381

PATIENT
  Age: 50 Year
  Sex: Female

DRUGS (2)
  1. PEGASYS [Suspect]
     Indication: HEPATITIS C
     Dosage: STOP DATE: JAN 2011
     Route: 058
     Dates: start: 20100901
  2. ROBATROL [Concomitant]
     Indication: HEPATITIS C
     Dosage: STOP DATE: JAN 2011
     Route: 048
     Dates: start: 20100901

REACTIONS (1)
  - HEARING IMPAIRED [None]
